FAERS Safety Report 7371305-X (Version None)
Quarter: 2011Q1

REPORT INFORMATION
  Report Type: 
  Country: None (occurrence: None)
  Receive Date: 20110321
  Receipt Date: 20110321
  Transmission Date: 20110831
  Serious: Yes (Life-Threatening)
  Sender: FDA-Public Use
  Company Number: None

PATIENT
  Age: 70 Year
  Sex: Male
  Weight: 81.6475 kg

DRUGS (2)
  1. INTEGRILIN [Suspect]
     Indication: STENT PLACEMENT
     Dates: start: 20110318, end: 20110318
  2. INTEGRILIN [Suspect]
     Indication: CORONARY ARTERY DISEASE
     Dates: start: 20110318, end: 20110318

REACTIONS (1)
  - THROMBOCYTOPENIA [None]
